FAERS Safety Report 8590433-4 (Version None)
Quarter: 2012Q3

REPORT INFORMATION
  Report Type: 
  Country: None (occurrence: None)
  Receive Date: 20120813
  Receipt Date: 20120806
  Transmission Date: 20120928
  Serious: Yes (Other)
  Sender: FDA-Public Use
  Company Number: US-UCBSA-063348

PATIENT
  Sex: Male

DRUGS (2)
  1. VIMPAT [Suspect]
     Dates: start: 20110601
  2. VIMPAT [Suspect]
     Indication: EPILEPSY
     Dosage: 50  AM, 100 QHS
     Dates: start: 20120621

REACTIONS (1)
  - CONVULSION [None]
